FAERS Safety Report 10251276 (Version 1)
Quarter: 2014Q2

REPORT INFORMATION
  Report Type: Other
  Country: US (occurrence: US)
  Receive Date: 20140621
  Receipt Date: 20140621
  Transmission Date: 20141212
  Serious: No
  Sender: FDA-Public Use
  Company Number: US-LUPIN PHARMACEUTICALS INC.-2014-00933

PATIENT
  Age: 37 Year
  Sex: Female

DRUGS (1)
  1. CIPROFLOXACIN [Suspect]
     Indication: ANTIBIOTIC THERAPY
     Route: 065

REACTIONS (1)
  - Hypersensitivity [Recovered/Resolved]
